FAERS Safety Report 7636276-7 (Version None)
Quarter: 2011Q3

REPORT INFORMATION
  Report Type: 
  Country: None (occurrence: None)
  Receive Date: 20110726
  Receipt Date: 20110715
  Transmission Date: 20111222
  Serious: Yes (Death)
  Sender: FDA-Public Use
  Company Number: US-UCBSA-037340

PATIENT
  Sex: Male

DRUGS (8)
  1. KEPPRA XR [Suspect]
     Indication: CONVULSION
     Route: 048
     Dates: end: 20110101
  2. TEMODAR [Concomitant]
     Indication: NEOPLASM MALIGNANT
     Dosage: 420 MG: THRU DAYS 1-5 MONTHLY
     Route: 048
     Dates: end: 20110101
  3. ZANAFLEX [Concomitant]
     Route: 048
     Dates: end: 20110101
  4. DEXAMETHASONE [Concomitant]
     Route: 048
     Dates: end: 20110101
  5. ZOFRAN [Concomitant]
     Indication: NAUSEA
     Route: 048
     Dates: end: 20110101
  6. XANAX [Concomitant]
     Indication: ANXIETY
     Route: 048
     Dates: end: 20110101
  7. DILAUDID [Concomitant]
     Indication: PAIN
     Dosage: 1-2 PILLS EVERY 4-6 HOURS
     Route: 048
     Dates: end: 20110101
  8. BACTRIM [Concomitant]
     Route: 048
     Dates: end: 20110101

REACTIONS (2)
  - INAPPROPRIATE SCHEDULE OF DRUG ADMINISTRATION [None]
  - DEATH [None]
